FAERS Safety Report 16790616 (Version 3)
Quarter: 2019Q3

REPORT INFORMATION
  Report Type: Spontaneous
  Country: PL (occurrence: PL)
  Receive Date: 20190910
  Receipt Date: 20190930
  Transmission Date: 20191005
  Serious: Yes (Death, Other)
  Sender: FDA-Public Use
  Company Number: PL-MYLANLABS-2019M1083727

PATIENT
  Age: 64 Year
  Sex: Female

DRUGS (12)
  1. FLUCONAZOLE. [Interacting]
     Active Substance: FLUCONAZOLE
     Indication: ORAL FUNGAL INFECTION
     Dosage: 200 MILLIGRAM, QD
     Route: 048
  2. FUROSEMIDE. [Concomitant]
     Active Substance: FUROSEMIDE
     Dosage: 60 MILLIGRAM, QD
     Route: 065
  3. OLANZAPINE. [Interacting]
     Active Substance: OLANZAPINE
     Indication: NAUSEA
     Dosage: UNK
     Route: 065
  4. LOW MOLECULAR WEIGHT HEPARIN [Concomitant]
     Active Substance: UNSPECIFIED INGREDIENT
     Dosage: UNK, A PREVENTIVE DOSE
  5. MORPHINE [Interacting]
     Active Substance: MORPHINE
     Indication: PAIN
     Dosage: 240 MILLIGRAM, QD
     Route: 048
  6. FLUCONAZOLE. [Interacting]
     Active Substance: FLUCONAZOLE
     Dosage: UNK
     Route: 048
  7. POTASSIUM [Concomitant]
     Active Substance: POTASSIUM
     Dosage: UNK
  8. FUROSEMIDE. [Concomitant]
     Active Substance: FUROSEMIDE
     Dosage: UNK
     Route: 065
  9. FLUCONAZOLE. [Interacting]
     Active Substance: FLUCONAZOLE
     Dosage: UNK
  10. OLANZAPINE. [Suspect]
     Active Substance: OLANZAPINE
     Indication: SLEEP DISORDER
     Dosage: 10 MILLIGRAM
     Route: 065
  11. AMITRIPTYLINE [Interacting]
     Active Substance: AMITRIPTYLINE
     Indication: PRODUCT USED FOR UNKNOWN INDICATION
     Dosage: 150 MILLIGRAM, QD (50 MG, 3X/DAY)
  12. MORPHINE [Interacting]
     Active Substance: MORPHINE
     Indication: NEURALGIA

REACTIONS (13)
  - Chest pain [Fatal]
  - Cyanosis [Fatal]
  - Confusional state [Unknown]
  - Pulmonary embolism [Fatal]
  - Venous thrombosis [Fatal]
  - Cough [Fatal]
  - Oedema peripheral [Fatal]
  - Haemoptysis [Fatal]
  - Drug interaction [Fatal]
  - Somnolence [Unknown]
  - Cardiac arrest [Fatal]
  - Dyspnoea [Fatal]
  - Nausea [Recovered/Resolved]
